FAERS Safety Report 9361529 (Version 1)
Quarter: 2013Q2

REPORT INFORMATION
  Report Type: Spontaneous
  Country: FR (occurrence: FR)
  Receive Date: 20130621
  Receipt Date: 20130621
  Transmission Date: 20140414
  Serious: Yes (Other)
  Sender: FDA-Public Use
  Company Number: FR-SANOFI-AVENTIS-2013SA061168

PATIENT
  Age: 55 Year
  Sex: Female
  Weight: 35 kg

DRUGS (9)
  1. ELOXATINE [Suspect]
     Indication: OESOPHAGEAL CARCINOMA
     Route: 065
     Dates: start: 20130521
  2. ELOXATINE [Suspect]
     Indication: OESOPHAGEAL CARCINOMA
     Dosage: FORM: INFUSION
     Route: 042
     Dates: start: 20130603, end: 20130603
  3. FOLINIC ACID [Concomitant]
     Indication: OESOPHAGEAL SQUAMOUS CELL CARCINOMA
     Dates: start: 20130521
  4. FOLINIC ACID [Concomitant]
     Indication: OESOPHAGEAL SQUAMOUS CELL CARCINOMA
     Dates: start: 20130603
  5. 5-FU [Concomitant]
     Indication: OESOPHAGEAL CARCINOMA
     Dates: start: 20130521
  6. 5-FU [Concomitant]
     Indication: OESOPHAGEAL CARCINOMA
     Route: 042
     Dates: start: 20130603, end: 20130603
  7. 5-FU [Concomitant]
     Indication: OESOPHAGEAL CARCINOMA
     Route: 042
     Dates: start: 20130603, end: 20130603
  8. METHYLPREDNISOLONE [Concomitant]
     Indication: PREMEDICATION
  9. ZOPHREN [Concomitant]
     Indication: PREMEDICATION

REACTIONS (1)
  - Bronchospasm paradoxical [Recovered/Resolved]
